FAERS Safety Report 10777955 (Version 1)
Quarter: 2015Q1

REPORT INFORMATION
  Report Type: Spontaneous
  Country: US (occurrence: US)
  Receive Date: 20150209
  Receipt Date: 20150209
  Transmission Date: 20150721
  Serious: No
  Sender: FDA-Public Use
  Company Number: US-AMGEN-USASP2014023417

PATIENT
  Age: 38 Year
  Sex: Female

DRUGS (10)
  1. PEGFILGRASTIM [Suspect]
     Active Substance: PEGFILGRASTIM
     Indication: PRODUCT USED FOR UNKNOWN INDICATION
     Dosage: UNK
     Route: 065
  2. DEXAMETHASONE. [Concomitant]
     Active Substance: DEXAMETHASONE
     Dosage: 12 MG, UNK
  3. DECADRON [Concomitant]
     Active Substance: DEXAMETHASONE
     Dosage: 20 MG, UNK
  4. ONDANSETRON [Concomitant]
     Active Substance: ONDANSETRON
     Dosage: 24 MG, UNK
  5. HERCEPTIN [Suspect]
     Active Substance: TRASTUZUMAB
     Dosage: 310 MG, UNK
     Route: 065
     Dates: start: 20120120
  6. HERCEPTIN [Suspect]
     Active Substance: TRASTUZUMAB
     Dosage: 100 MG, UNK
     Route: 065
     Dates: start: 20110520
  7. HERCEPTIN [Suspect]
     Active Substance: TRASTUZUMAB
     Dosage: 312 MG, UNK
     Route: 065
     Dates: start: 20110715
  8. PEPCID [Concomitant]
     Active Substance: FAMOTIDINE
     Dosage: 20 MG, UNK
  9. PACLITAXEL. [Concomitant]
     Active Substance: PACLITAXEL
     Dosage: 175 MG/M2, UNK
  10. HERCEPTIN [Suspect]
     Active Substance: TRASTUZUMAB
     Indication: BREAST CANCER
     Dosage: 200 MG, UNK
     Route: 065
     Dates: start: 20110513

REACTIONS (3)
  - Fatigue [Unknown]
  - Alopecia [Unknown]
  - Insomnia [Unknown]
